FAERS Safety Report 10257155 (Version 2)
Quarter: 2014Q2

REPORT INFORMATION
  Report Type: Spontaneous
  Country: US (occurrence: US)
  Receive Date: 20140625
  Receipt Date: 20140625
  Transmission Date: 20141212
  Serious: Yes (Other)
  Sender: FDA-Public Use
  Company Number: US-AMGEN-USASP2014035450

PATIENT
  Sex: Male

DRUGS (2)
  1. NPLATE [Suspect]
     Indication: IMMUNE THROMBOCYTOPENIC PURPURA
     Dosage: UNK
     Route: 065
     Dates: start: 2012
  2. PROBIOTICS                         /07325001/ [Concomitant]

REACTIONS (9)
  - Ileus paralytic [Unknown]
  - Blindness transient [Recovered/Resolved]
  - Blood count abnormal [Unknown]
  - Infection [Unknown]
  - Skin discolouration [Recovered/Resolved]
  - Pain [Unknown]
  - Malaise [Unknown]
  - Pyrexia [Unknown]
  - Diarrhoea [Recovered/Resolved]
